FAERS Safety Report 9771865 (Version 1)
Quarter: 2013Q3

REPORT INFORMATION
  Report Type: Spontaneous
  Country: US (occurrence: None)
  Receive Date: 20130923
  Receipt Date: 20130923
  Transmission Date: 20140515
  Serious: Yes (Death)
  Sender: FDA-Public Use
  Company Number: 41805

PATIENT
  Age: 61 Year
  Sex: 0
  Weight: 99.79 kg

DRUGS (13)
  1. GLASSIA (ALPHA-PROTEINASE INHIBITOR (HUMAN)) KAMADA [Suspect]
     Indication: ALPHA-1 ANTI-TRYPSIN DEFICIENCY
     Route: 042
     Dates: start: 20110921, end: 20130809
  2. ZOLOFT [Concomitant]
  3. PLAVIX [Concomitant]
  4. PROCARDIA XL [Concomitant]
  5. LAMICTAL [Concomitant]
  6. SIMVASTATIN [Concomitant]
  7. LABETELOL [Concomitant]
  8. KLONOPIN [Concomitant]
  9. ASPIRIN [Concomitant]
  10. DILAUDID [Concomitant]
  11. TORSEMIDE [Concomitant]
  12. LISINOPRIL [Concomitant]
  13. OXYGEN [Concomitant]

REACTIONS (9)
  - Myocardial infarction [None]
  - Anxiety [None]
  - Hypotension [None]
  - Bronchitis [None]
  - Chronic obstructive pulmonary disease [None]
  - Candida infection [None]
  - Hyperlipidaemia [None]
  - Carotid bruit [None]
  - General physical health deterioration [None]
